FAERS Safety Report 4766063-9 (Version None)
Quarter: 2005Q3

REPORT INFORMATION
  Report Type: 
  Country: None (occurrence: None)
  Receive Date: 20050912
  Receipt Date: 20050819
  Transmission Date: 20060218
  Serious: Yes (Other)
  Sender: FDA-Public Use
  Company Number: AU-GLAXOSMITHKLINE-B0391684A

PATIENT
  Sex: Male

DRUGS (1)
  1. NICABATE CQ CLEAR 21MG [Suspect]
     Dosage: 21MG PER DAY
     Route: 062

REACTIONS (4)
  - ANAPHYLACTIC REACTION [None]
  - APPLICATION SITE ERYTHEMA [None]
  - PHARYNGEAL OEDEMA [None]
  - RASH GENERALISED [None]
